FAERS Safety Report 4768188-0 (Version None)
Quarter: 2005Q3

REPORT INFORMATION
  Report Type: 
  Country: None (occurrence: None)
  Receive Date: 20050908
  Receipt Date: 20050414
  Transmission Date: 20060218
  Serious: Yes (Other)
  Sender: FDA-Public Use
  Company Number: A03200501087

PATIENT
  Sex: Female
  Weight: 72.1219 kg

DRUGS (6)
  1. ELOXATIN [Suspect]
     Indication: PANCREATIC CARCINOMA METASTATIC
     Dosage: 135 MG Q2W - INTRAVENOUS NOS
     Route: 042
     Dates: start: 20050414, end: 20050414
  2. CALCIUM GLUCONATE [Concomitant]
  3. MAGNESIUM SULFATE [Concomitant]
  4. DEXAMETHASONE [Concomitant]
  5. PALONOSETRON [Concomitant]
  6. GEMCITABINE [Concomitant]

REACTIONS (7)
  - ATRIAL NATRIURETIC PEPTIDE INCREASED [None]
  - BRADYCARDIA [None]
  - FLUSHING [None]
  - HYPERSENSITIVITY [None]
  - HYPOTENSION [None]
  - HYPOXIA [None]
  - NAUSEA [None]
